FAERS Safety Report 21445943 (Version 1)
Quarter: 2022Q4

REPORT INFORMATION
  Report Type: Report from Study
  Country: US (occurrence: US)
  Receive Date: 20221012
  Receipt Date: 20221012
  Transmission Date: 20230113
  Serious: Yes (Other)
  Sender: FDA-Public Use
  Company Number: US-PFIZER INC-202201196449

PATIENT
  Age: 60 Year
  Sex: Female

DRUGS (2)
  1. METRONIDAZOLE [Interacting]
     Active Substance: METRONIDAZOLE
     Dosage: UNK
  2. COLCHICINE [Interacting]
     Active Substance: COLCHICINE
     Dosage: UNK

REACTIONS (10)
  - Drug interaction [Unknown]
  - Septic shock [Unknown]
  - Cardiogenic shock [Unknown]
  - Cardiac arrest [Unknown]
  - Atrial fibrillation [Unknown]
  - Type 2 diabetes mellitus [Unknown]
  - Blood creatine phosphokinase increased [Unknown]
  - Gout [Unknown]
  - Muscle disorder [Unknown]
  - Tobacco abuse [Unknown]
